FAERS Safety Report 4705571-3 (Version None)
Quarter: 2005Q2

REPORT INFORMATION
  Report Type: 
  Country: None (occurrence: None)
  Receive Date: 20050629
  Receipt Date: 20041008
  Transmission Date: 20051028
  Serious: Yes (Hospitalization)
  Sender: FDA-Public Use
  Company Number: 200410708FR

PATIENT
  Age: 54 Year
  Sex: Male
  Weight: 89 kg

DRUGS (8)
  1. HEPARIN [Suspect]
     Dosage: 5000 IU/DAY IVB
     Route: 040
     Dates: start: 20040218, end: 20040218
  2. INTEGRILIN [Suspect]
     Dosage: 7.9 ML/DAY IV
     Route: 042
     Dates: start: 20040218, end: 20040218
  3. INTEGRILIN [Suspect]
     Dosage: 7 ML/H/DAY IV
     Route: 042
     Dates: start: 20040218, end: 20040218
  4. ASPEGIC 325 [Concomitant]
  5. TAHOR [Concomitant]
  6. DAFLON [Concomitant]
  7. HEMIDAONIL [Concomitant]
  8. PLAVIX [Concomitant]

REACTIONS (3)
  - ATRIOVENTRICULAR BLOCK COMPLETE [None]
  - CARDIAC ARREST [None]
  - MYOCARDIAL INFARCTION [None]
